FAERS Safety Report 4591691-3 (Version None)
Quarter: 2005Q1

REPORT INFORMATION
  Report Type: 
  Country: None (occurrence: None)
  Receive Date: 20050218
  Receipt Date: 20050208
  Transmission Date: 20050727
  Serious: Yes (Hospitalization, Disabling)
  Sender: FDA-Public Use
  Company Number: 2005026451

PATIENT
  Age: 12 Year
  Sex: Female
  Weight: 32.659 kg

DRUGS (3)
  1. GENOTROPIN [Suspect]
     Indication: BODY HEIGHT BELOW NORMAL
     Dosage: 1 MG (1 MG, 1 IN 1 D), SUBCUTANEOUS
     Route: 058
     Dates: start: 20040921, end: 20050201
  2. DEFEROXAMINE MESILATE (DEFEROXAMINE MESILATE) [Concomitant]
  3. HYDROCORTISONE [Concomitant]

REACTIONS (2)
  - GAIT DISTURBANCE [None]
  - HIP SURGERY [None]
